FAERS Safety Report 4889415-5 (Version None)
Quarter: 2006Q1

REPORT INFORMATION
  Report Type: 
  Country: None (occurrence: None)
  Receive Date: 20060120
  Receipt Date: 20060110
  Transmission Date: 20060701
  Serious: Yes (Other)
  Sender: FDA-Public Use
  Company Number: 2006007107

PATIENT
  Age: 72 Year
  Sex: Female
  Weight: 56.6996 kg

DRUGS (7)
  1. XALATAN [Suspect]
     Indication: GLAUCOMA
     Dosage: 2 DROP (1 DROP, 1 IN 1 D), OPHTHALMIC
     Route: 047
  2. COSOPT [Suspect]
     Indication: GLAUCOMA
  3. LUMIGAN [Suspect]
     Indication: GLAUCOMA
  4. TIMOPTIC [Suspect]
     Indication: GLAUCOMA
  5. LEVOXYL [Concomitant]
  6. PREVACID [Concomitant]
  7. LORAZEPAM [Concomitant]

REACTIONS (5)
  - ANXIETY [None]
  - DRUG INEFFECTIVE [None]
  - PARAESTHESIA [None]
  - POST PROCEDURAL COMPLICATION [None]
  - TREMOR [None]
